FAERS Safety Report 15597610 (Version 1)
Quarter: 2018Q4

REPORT INFORMATION
  Report Type: Spontaneous
  Country: US (occurrence: US)
  Receive Date: 20181108
  Receipt Date: 20181108
  Transmission Date: 20190205
  Serious: Yes (Other)
  Sender: FDA-Public Use
  Company Number: US-COOPERSURGICAL, INC.-US-2018CPS033541

PATIENT

DRUGS (1)
  1. PARAGARD T 380A [Suspect]
     Active Substance: COPPER
     Indication: PRODUCT USED FOR UNKNOWN INDICATION
     Dosage: UNK
     Route: 015

REACTIONS (7)
  - Mood altered [Recovering/Resolving]
  - Pain [Recovered/Resolved]
  - Headache [Unknown]
  - Cardiac disorder [Unknown]
  - Asthenia [Unknown]
  - Anxiety [Unknown]
  - Atrial fibrillation [Unknown]
